FAERS Safety Report 10186902 (Version 1)
Quarter: 2014Q2

REPORT INFORMATION
  Report Type: Spontaneous
  Country: FR (occurrence: FR)
  Receive Date: 20140522
  Receipt Date: 20140522
  Transmission Date: 20141212
  Serious: Yes (Hospitalization)
  Sender: FDA-Public Use
  Company Number: FR-ROCHE-1405473

PATIENT
  Age: 48 Year
  Sex: Male

DRUGS (2)
  1. MABTHERA [Suspect]
     Indication: PRODUCT USED FOR UNKNOWN INDICATION
     Dosage: COURSE 1
     Route: 042
     Dates: start: 20140125
  2. MABTHERA [Suspect]
     Dosage: COURSE 2
     Route: 042
     Dates: start: 20140219, end: 20140219

REACTIONS (5)
  - Influenza like illness [Recovering/Resolving]
  - Renal failure [Recovered/Resolved]
  - Diarrhoea [Recovered/Resolved]
  - Cellulitis [Recovered/Resolved]
  - Lung disorder [Recovering/Resolving]
